FAERS Safety Report 9605952 (Version 1)
Quarter: 2013Q4

REPORT INFORMATION
  Report Type: Spontaneous
  Country: CA (occurrence: CA)
  Receive Date: 20131008
  Receipt Date: 20131008
  Transmission Date: 20140711
  Serious: Yes (Other)
  Sender: FDA-Public Use
  Company Number: CA-ROCHE-1283790

PATIENT
  Age: 52 Year
  Sex: Male

DRUGS (11)
  1. FUZEON [Suspect]
     Indication: PRODUCT USED FOR UNKNOWN INDICATION
     Route: 058
  2. ISENTRESS [Suspect]
     Indication: PRODUCT USED FOR UNKNOWN INDICATION
     Route: 048
  3. ISENTRESS [Suspect]
     Dosage: DOSE: 2.0 DOSAGE FORMS
     Route: 048
  4. ISENTRESS [Suspect]
     Route: 048
  5. PREZISTA [Suspect]
     Indication: PRODUCT USED FOR UNKNOWN INDICATION
     Dosage: THERAPY DURATION: 232.0 DAYS
     Route: 048
  6. PREZISTA [Suspect]
     Route: 048
  7. ZIAGEN [Suspect]
     Indication: PRODUCT USED FOR UNKNOWN INDICATION
     Route: 065
  8. RITONAVIR [Suspect]
     Indication: PRODUCT USED FOR UNKNOWN INDICATION
     Route: 065
  9. ASPIRIN [Concomitant]
     Route: 065
  10. IMODIUM [Concomitant]
     Route: 065
  11. TYLENOL [Concomitant]
     Route: 065

REACTIONS (3)
  - Accidental overdose [Unknown]
  - Ecchymosis [Recovered/Resolved]
  - Underdose [Unknown]
